FAERS Safety Report 6159741-0 (Version None)
Quarter: 2009Q2

REPORT INFORMATION
  Report Type: 
  Country: None (occurrence: None)
  Receive Date: 20090420
  Receipt Date: 20090413
  Transmission Date: 20091009
  Serious: Yes (Hospitalization)
  Sender: FDA-Public Use
  Company Number: US-BIOGENIDEC-2007BI006913

PATIENT
  Age: 31 Year
  Sex: Female

DRUGS (2)
  1. AVONEX [Suspect]
     Indication: MULTIPLE SCLEROSIS
     Route: 030
     Dates: start: 19980701, end: 20040101
  2. AVONEX [Suspect]
     Route: 030
     Dates: start: 20050601

REACTIONS (2)
  - AMNIOTIC FLUID VOLUME DECREASED [None]
  - IDIOPATHIC THROMBOCYTOPENIC PURPURA [None]
